FAERS Safety Report 7150229-7 (Version None)
Quarter: 2010Q4

REPORT INFORMATION
  Report Type: 
  Country: None (occurrence: None)
  Receive Date: 20101126
  Receipt Date: 20101117
  Transmission Date: 20110411
  Serious: Yes (Death)
  Sender: FDA-Public Use
  Company Number: DKLU1066624

PATIENT
  Age: 43 Year
  Sex: Male

DRUGS (1)
  1. SABRIL [Suspect]
     Indication: PARTIAL SEIZURES
     Dosage: 2750 MG MILLIGRAM(S), DAILY DIVIDED DOSES, ORAL
     Route: 048
     Dates: start: 20100401, end: 20101101

REACTIONS (1)
  - DEATH [None]
